FAERS Safety Report 9005019 (Version 2)
Quarter: 2013Q2

REPORT INFORMATION
  Report Type: Report from Study
  Country: CA (occurrence: CA)
  Receive Date: 20130109
  Receipt Date: 20130411
  Transmission Date: 20140414
  Serious: Yes (Hospitalization)
  Sender: FDA-Public Use
  Company Number: CA-JNJFOC-20130102153

PATIENT
  Age: 61 Year
  Sex: Male
  Weight: 126.2 kg

DRUGS (19)
  1. REMICADE [Suspect]
     Indication: CROHN^S DISEASE
     Route: 042
     Dates: start: 20121119
  2. REMICADE [Suspect]
     Indication: CROHN^S DISEASE
     Route: 042
     Dates: start: 2007
  3. VITAMIN D [Concomitant]
     Route: 065
  4. ATROVENT [Concomitant]
     Route: 065
  5. OXEZE TURBOHALER [Concomitant]
     Route: 065
  6. METOPROLOL [Concomitant]
     Route: 065
  7. VITAMIN B12 [Concomitant]
     Route: 065
  8. FERROUS SULPHATE [Concomitant]
     Route: 065
  9. PANTOPRAZOLE [Concomitant]
     Route: 065
  10. ALENDRONATE [Concomitant]
     Route: 065
  11. RAMIPRIL [Concomitant]
     Route: 065
  12. MAGNESIUM GLUCONATE [Concomitant]
     Route: 065
  13. ALLOPURINOL [Concomitant]
     Route: 065
  14. FOLIC ACID [Concomitant]
     Route: 065
  15. HYDROCHLOROTHIAZIDE [Concomitant]
     Route: 065
  16. FLOVENT [Concomitant]
     Route: 065
  17. DIGOXIN [Concomitant]
     Route: 065
  18. FLECAINIDE [Concomitant]
     Route: 065
  19. ATROVENT [Concomitant]
     Route: 065

REACTIONS (5)
  - Crohn^s disease [Unknown]
  - Atrial fibrillation [Recovering/Resolving]
  - Intestinal stenosis [Unknown]
  - Ulcer [Unknown]
  - Malabsorption [Recovering/Resolving]
